FAERS Safety Report 15390944 (Version 1)
Quarter: 2018Q3

REPORT INFORMATION
  Report Type: Spontaneous
  Country: US (occurrence: US)
  Receive Date: 20180917
  Receipt Date: 20180917
  Transmission Date: 20181010
  Serious: No
  Sender: FDA-Public Use
  Company Number: US-SA-2018SA258245

PATIENT
  Age: 77 Year
  Sex: Male

DRUGS (9)
  1. TOUJEO [Suspect]
     Active Substance: INSULIN GLARGINE
     Dosage: 15 IU, QD
     Route: 065
  2. ACTOS [Concomitant]
     Active Substance: PIOGLITAZONE HYDROCHLORIDE
  3. HUMALOG [Concomitant]
     Active Substance: INSULIN LISPRO
     Dosage: 10 IU, BEFORE SUPPER
     Route: 065
  4. TOUJEO [Suspect]
     Active Substance: INSULIN GLARGINE
     Indication: TYPE 2 DIABETES MELLITUS
     Dosage: 10 IU, QD
     Route: 065
  5. TOUJEO [Suspect]
     Active Substance: INSULIN GLARGINE
     Dosage: 30 IU, QD
     Route: 065
  6. TOUJEO [Suspect]
     Active Substance: INSULIN GLARGINE
     Dosage: 40 IU, QD
     Route: 065
  7. TOUJEO [Suspect]
     Active Substance: INSULIN GLARGINE
     Dosage: 25 IU, QD
     Route: 065
  8. TOUJEO [Suspect]
     Active Substance: INSULIN GLARGINE
     Dosage: 20 IU, QD
     Route: 065
  9. NOVOLIN [Concomitant]
     Active Substance: INSULIN HUMAN
     Dosage: 70/30

REACTIONS (5)
  - Blood glucose increased [Not Recovered/Not Resolved]
  - Glycosylated haemoglobin increased [Not Recovered/Not Resolved]
  - Headache [Not Recovered/Not Resolved]
  - Muscle spasms [Not Recovered/Not Resolved]
  - Pain in extremity [Not Recovered/Not Resolved]
